FAERS Safety Report 9667759 (Version 2)
Quarter: 2013Q4

REPORT INFORMATION
  Report Type: Spontaneous
  Country: US (occurrence: US)
  Receive Date: 20131104
  Receipt Date: 20131115
  Transmission Date: 20140711
  Serious: No
  Sender: FDA-Public Use
  Company Number: US-TEVA-442492USA

PATIENT
  Age: 34 Year
  Sex: Female
  Weight: 54.03 kg

DRUGS (5)
  1. PLAN B ONE-STEP [Suspect]
     Indication: POST COITAL CONTRACEPTION
     Dosage: 1.5 MILLIGRAM DAILY;
     Route: 048
     Dates: start: 20131024, end: 20131024
  2. TOPAMAX [Concomitant]
     Indication: EPILEPSY
  3. ZOLOFT [Concomitant]
     Indication: DEPRESSION
  4. ATIVAN [Concomitant]
     Indication: ANXIETY
  5. ZYRTEC [Concomitant]
     Indication: SEASONAL ALLERGY

REACTIONS (3)
  - Back pain [Recovered/Resolved]
  - Dysmenorrhoea [Recovered/Resolved]
  - Menstruation irregular [Recovered/Resolved]
